FAERS Safety Report 9714272 (Version 3)
Quarter: 2015Q3

REPORT INFORMATION
  Report Type: Spontaneous
  Country: US (occurrence: US)
  Receive Date: 20131126
  Receipt Date: 20150803
  Transmission Date: 20151125
  Serious: No
  Sender: FDA-Public Use
  Company Number: US-GILEAD-2008-0019072

PATIENT
  Age: 80 Year
  Sex: Female
  Weight: 60.78 kg

DRUGS (11)
  1. LETAIRIS [Suspect]
     Active Substance: AMBRISENTAN
     Indication: PULMONARY ARTERIAL HYPERTENSION
     Route: 048
     Dates: start: 20081107
  2. COUMADIN [Concomitant]
     Active Substance: WARFARIN SODIUM
  3. LASIX [Concomitant]
     Active Substance: FUROSEMIDE
  4. ASPIRIN. [Concomitant]
     Active Substance: ASPIRIN
  5. CALCIUM [Concomitant]
     Active Substance: CALCIUM
  6. LISINOPRIL. [Concomitant]
     Active Substance: LISINOPRIL
  7. PERCOCET [Concomitant]
     Active Substance: ACETAMINOPHEN\OXYCODONE HYDROCHLORIDE
  8. POTASSIUM CHLORIDE. [Concomitant]
     Active Substance: POTASSIUM CHLORIDE
  9. METOPROLOL [Concomitant]
     Active Substance: METOPROLOL
  10. MULTIVITAMIN [Concomitant]
     Active Substance: VITAMINS
  11. NORVASC [Concomitant]
     Active Substance: AMLODIPINE BESYLATE

REACTIONS (1)
  - Anaemia [Unknown]
